FAERS Safety Report 7007370-9 (Version None)
Quarter: 2010Q3

REPORT INFORMATION
  Report Type: 
  Country: None (occurrence: None)
  Receive Date: 20100922
  Receipt Date: 20100106
  Transmission Date: 20110219
  Serious: Yes (Hospitalization, Other)
  Sender: FDA-Public Use
  Company Number: GB-PURDUE-GBR-2004-0001399

PATIENT
  Sex: Female

DRUGS (10)
  1. PLACEBO [Suspect]
     Indication: NEURALGIA
     Dosage: 10 MG, DAILY
     Dates: start: 20041117, end: 20041124
  2. OXYCONTIN [Suspect]
     Indication: DIABETIC NEUROPATHY
     Dosage: 10 MG, BID
     Route: 048
     Dates: start: 20041127
  3. GABAPENTIN [Suspect]
     Indication: DIABETIC NEUROPATHY
     Dosage: 600 MG, TID
     Route: 048
     Dates: start: 20000101
  4. SENNA-MINT WAF [Concomitant]
     Indication: CONSTIPATION
     Dosage: 2 TABLET, DAILY
     Route: 048
     Dates: start: 20040406
  5. ASCORBIC ACID [Concomitant]
     Indication: ANAEMIA
     Dosage: 500 MG, DAILY
     Route: 048
     Dates: start: 20040406
  6. LANSOPRAZOLE [Concomitant]
     Indication: ABDOMINAL DISCOMFORT
     Dosage: 30 MG, DAILY
     Route: 048
     Dates: start: 20040406
  7. VENLAFAXINE [Concomitant]
     Indication: DEPRESSION
     Dosage: 150 MG, DAILY
     Route: 048
     Dates: start: 20040406
  8. SIMVASTATIN [Concomitant]
     Indication: BLOOD CHOLESTEROL INCREASED
     Dosage: 20 MG, DAILY
     Route: 048
     Dates: start: 20040406
  9. BISOPROLOL [Concomitant]
     Indication: HYPERTENSION
     Dosage: 25 MG, DAILY
     Route: 048
     Dates: start: 20040406
  10. FRUSEMIDE                          /00032601/ [Concomitant]
     Indication: CARDIAC FAILURE CONGESTIVE
     Dosage: 40 MG, DAILY
     Route: 048
     Dates: start: 20040406

REACTIONS (3)
  - DYSPNOEA [None]
  - FALL [None]
  - NAUSEA [None]
